FAERS Safety Report 23668954 (Version 2)
Quarter: 2024Q2

REPORT INFORMATION
  Report Type: Spontaneous
  Country: JP (occurrence: JP)
  Receive Date: 20240325
  Receipt Date: 20240422
  Transmission Date: 20240716
  Serious: Yes (Death, Hospitalization, Other)
  Sender: FDA-Public Use
  Company Number: JP-CHUGAI-2024008225

PATIENT
  Age: 74 Year
  Sex: Male
  Weight: 60 kg

DRUGS (19)
  1. TECENTRIQ [Suspect]
     Active Substance: ATEZOLIZUMAB
     Indication: Lung adenocarcinoma
     Dosage: 1200 MILLIGRAM, QD
     Route: 065
     Dates: start: 20230823, end: 20231117
  2. AVASTIN [Suspect]
     Active Substance: BEVACIZUMAB
     Indication: Lung adenocarcinoma
     Dosage: 500 MILLIGRAM, QD
     Route: 065
     Dates: start: 20231013, end: 20231013
  3. PACLITAXEL [Suspect]
     Active Substance: PACLITAXEL
     Indication: Lung adenocarcinoma
     Route: 065
     Dates: start: 20230823, end: 20231117
  4. CARBOPLATIN [Suspect]
     Active Substance: CARBOPLATIN
     Indication: Lung adenocarcinoma
     Route: 065
     Dates: start: 20230823, end: 20231117
  5. CARBOPLATIN [Suspect]
     Active Substance: CARBOPLATIN
     Route: 065
     Dates: start: 20231013, end: 20231117
  6. BIO-THREE [Concomitant]
     Active Substance: HERBALS
     Dosage: 2 DOSAGE FORM, TID
     Dates: start: 20230927, end: 20231219
  7. ZOLPIDEM TARTRATE [Concomitant]
     Active Substance: ZOLPIDEM TARTRATE
     Dosage: 5 MILLIGRAM, HS
     Dates: start: 20230728, end: 20231220
  8. BELSOMRA [Concomitant]
     Active Substance: SUVOREXANT
     Dosage: 15 MILLIGRAM, HS
     Dates: start: 20230728, end: 20240209
  9. CALONAL [Concomitant]
     Active Substance: ACETAMINOPHEN
     Dosage: 400 MILLIGRAM, QID
     Dates: start: 20230817, end: 20231217
  10. VONOPRAZAN FUMARATE [Concomitant]
     Active Substance: VONOPRAZAN FUMARATE
     Dosage: 10 MILLIGRAM, QD
     Dates: start: 20230719, end: 20240209
  11. SYMPROIC [Concomitant]
     Active Substance: NALDEMEDINE
     Dosage: 0.2 MILLIGRAM, QD
     Dates: start: 20230718, end: 20240209
  12. CALCIUM CARBONATE\CHOLECALCIFEROL\MAGNESIUM CARBONATE [Concomitant]
     Active Substance: CALCIUM CARBONATE\CHOLECALCIFEROL\MAGNESIUM CARBONATE
     Dosage: 1 DOSAGE FORM, QD
     Dates: start: 20230817, end: 20240209
  13. CALCIUM POLYSTYRENE SULFONATE [Concomitant]
     Active Substance: CALCIUM POLYSTYRENE SULFONATE
     Dosage: 25 GRAM, BID
     Dates: start: 20230831, end: 20240209
  14. MAGNESIUM OXIDE [Concomitant]
     Active Substance: MAGNESIUM OXIDE
     Dosage: 660 MILLIGRAM, TID
     Dates: start: 20231001, end: 20240209
  15. HYDROMORPHONE HYDROCHLORIDE [Concomitant]
     Active Substance: HYDROMORPHONE HYDROCHLORIDE
     Dosage: 6 MILLIGRAM, QD
     Dates: start: 20230817, end: 20240129
  16. HYDROMORPHONE HYDROCHLORIDE [Concomitant]
     Active Substance: HYDROMORPHONE HYDROCHLORIDE
     Dosage: 1 MILLIGRAM, PRN
     Dates: start: 20230719, end: 20240131
  17. HYDROMORPHONE HYDROCHLORIDE [Concomitant]
     Active Substance: HYDROMORPHONE HYDROCHLORIDE
     Dosage: 2 MILLIGRAM, PRN
     Dates: start: 20230817, end: 20240131
  18. SILVER SULFADIAZINE [Concomitant]
     Active Substance: SILVER SULFADIAZINE
     Dosage: 1 PERCENT, QD
  19. DENOSUMAB [Concomitant]
     Active Substance: DENOSUMAB
     Dosage: UNK, ONCE/4WEEKS
     Dates: start: 20230817, end: 20240122

REACTIONS (8)
  - Liver abscess [Fatal]
  - Cholangitis [Fatal]
  - Cerebral infarction [Unknown]
  - Pneumonia klebsiella [Unknown]
  - Disease progression [Unknown]
  - Metastases to central nervous system [Unknown]
  - Escherichia infection [Unknown]
  - Klebsiella infection [Unknown]

NARRATIVE: CASE EVENT DATE: 20231208
